FAERS Safety Report 6291851-X (Version None)
Quarter: 2009Q3

REPORT INFORMATION
  Report Type: 
  Country: None (occurrence: None)
  Receive Date: 20090730
  Receipt Date: 20090721
  Transmission Date: 20100115
  Serious: Yes (Death, Life-Threatening, Hospitalization, Other)
  Sender: FDA-Public Use
  Company Number: ES-MERCK-0907ESP00023

PATIENT
  Age: 66 Year
  Sex: Female

DRUGS (5)
  1. FOSAMAX PLUS D [Suspect]
     Indication: OSTEOPOROSIS
     Route: 048
     Dates: start: 20090325, end: 20090417
  2. FOSAMAX PLUS D [Suspect]
     Route: 048
     Dates: start: 20090417, end: 20090424
  3. OMEPRAZOLE [Concomitant]
     Route: 065
  4. TRIFLUSAL [Concomitant]
     Route: 065
  5. OLMESARTAN MEDOXOMIL [Concomitant]
     Indication: HYPERTENSION
     Route: 065

REACTIONS (5)
  - ASPERGILLOSIS [None]
  - ATRIAL FIBRILLATION [None]
  - HEPATITIS FULMINANT [None]
  - RESPIRATORY FAILURE [None]
  - THROMBOCYTOPENIA [None]
